FAERS Safety Report 5394947-X (Version None)
Quarter: 2007Q3

REPORT INFORMATION
  Report Type: 
  Country: None (occurrence: None)
  Receive Date: 20070720
  Receipt Date: 20070711
  Transmission Date: 20080115
  Serious: Yes (Hospitalization)
  Sender: FDA-Public Use
  Company Number: 2007BI014529

PATIENT
  Age: 44 Year
  Sex: Female
  Weight: 65 kg

DRUGS (6)
  1. NATALIZUMAB          (NATALIZUMAB) [Suspect]
     Indication: MULTIPLE SCLEROSIS
     Dosage: 300 MG;QM;IV
     Route: 042
     Dates: start: 20070528
  2. GABAPENTIN [Concomitant]
  3. ALPRAZOLAM [Concomitant]
  4. OMEPRAZOLE [Concomitant]
  5. FENTONYL PLASTER [Concomitant]
  6. CIPROFLOXACIN HCL [Concomitant]

REACTIONS (4)
  - COORDINATION ABNORMAL [None]
  - IIIRD NERVE PARESIS [None]
  - MENINGISM [None]
  - MULTIPLE SCLEROSIS RELAPSE [None]
